FAERS Safety Report 13682644 (Version 3)
Quarter: 2017Q3

REPORT INFORMATION
  Report Type: Spontaneous
  Country: RO (occurrence: RO)
  Receive Date: 20170623
  Receipt Date: 20170731
  Transmission Date: 20171127
  Serious: Yes (Hospitalization)
  Sender: FDA-Public Use
  Company Number: RO-PFIZER INC-2017257213

PATIENT
  Age: 64 Year
  Sex: Female
  Weight: 67 kg

DRUGS (3)
  1. SPIRULINA /01514001/ [Concomitant]
     Active Substance: SPIRULINA
     Dosage: 1000 MG, 2X/DAY, MORNING ANE EVENING
  2. SUTENT [Suspect]
     Active Substance: SUNITINIB MALATE
     Indication: METASTATIC RENAL CELL CARCINOMA
     Dosage: 50 MG, CYCLIC (DAILY, 14 DAYS ON TREATMENT FOLLOWED BY 7 DAYS PAUSE)
     Dates: start: 20161004
  3. ALPRAZOLAM. [Concomitant]
     Active Substance: ALPRAZOLAM
     Dosage: 25 MG, 2X/DAY, MORNING AND EVENING

REACTIONS (15)
  - Palmar-plantar erythrodysaesthesia syndrome [Recovered/Resolved]
  - Fatigue [Recovered/Resolved]
  - General physical health deterioration [Recovered/Resolved]
  - Gastritis [Recovered/Resolved]
  - Thrombocytopenia [Recovered/Resolved]
  - Anxiety disorder [Recovered/Resolved]
  - Skin exfoliation [Recovered/Resolved]
  - Anal fissure [Recovered/Resolved]
  - Decreased appetite [Recovered/Resolved]
  - Haemorrhoids [Recovered/Resolved]
  - Condition aggravated [Recovered/Resolved]
  - Skin lesion [Recovered/Resolved]
  - Nausea [Recovered/Resolved]
  - Vomiting [Recovered/Resolved]
  - Weight decreased [Recovered/Resolved]

NARRATIVE: CASE EVENT DATE: 20170601
